FAERS Safety Report 12728672 (Version 1)
Quarter: 2016Q3

REPORT INFORMATION
  Report Type: Spontaneous
  Country: US (occurrence: US)
  Receive Date: 20160907
  Receipt Date: 20160907
  Transmission Date: 20161109
  Serious: Yes (Death)
  Sender: FDA-Public Use
  Company Number: None

PATIENT
  Age: 49 Year
  Sex: Male

DRUGS (3)
  1. GOODNITER ANTI-SNORING MOUTHSPRA [Suspect]
     Active Substance: .ALPHA.-TOCOPHEROL\HERBALS\HYALURONIC ACID
     Indication: SNORING
     Dates: start: 20160609
  2. TWYNSTA [Concomitant]
     Active Substance: AMLODIPINE BESYLATE\TELMISARTAN
  3. GOODNITER ANTI-SNORING MOUTHSPRA [Suspect]
     Active Substance: .ALPHA.-TOCOPHEROL\HERBALS\HYALURONIC ACID
     Indication: SELF-MEDICATION
     Dates: start: 20160609

REACTIONS (4)
  - Chest pain [None]
  - Cardiac arrest [None]
  - Dyspnoea [None]
  - Hypoaesthesia [None]

NARRATIVE: CASE EVENT DATE: 20160610
